FAERS Safety Report 9907179 (Version 2)
Quarter: 2014Q1

REPORT INFORMATION
  Report Type: Report from Study
  Country: US (occurrence: US)
  Receive Date: 20140218
  Receipt Date: 20140218
  Transmission Date: 20141002
  Serious: Yes (Other)
  Sender: FDA-Public Use
  Company Number: US-B.I. PHARMACEUTICALS,INC./RIDGEFIELD-2014-BI-00481BI

PATIENT
  Age: 56 Year
  Sex: Female

DRUGS (12)
  1. GILOTRIF [Suspect]
     Indication: NON-SMALL CELL LUNG CANCER
     Dosage: 40 MG
     Route: 048
     Dates: start: 20131231
  2. GILOTRIF [Suspect]
     Indication: LUNG CARCINOMA CELL TYPE UNSPECIFIED STAGE 0
     Dosage: 40 MG
     Route: 048
     Dates: start: 20140102
  3. ALBUTEROL [Concomitant]
  4. XANAX [Concomitant]
  5. LIPITOR [Concomitant]
  6. SYMBICORT [Concomitant]
  7. HUMULIN N [Concomitant]
  8. LEVOTHYROXINE [Concomitant]
  9. OXYCONTIN [Concomitant]
     Dosage: 5 MG
  10. COUMADIN [Concomitant]
  11. ZOLOFT [Concomitant]
  12. BABY ASPIRIN [Concomitant]

REACTIONS (7)
  - Metastatic neoplasm [Not Recovered/Not Resolved]
  - Myalgia [Not Recovered/Not Resolved]
  - Dry mouth [Not Recovered/Not Resolved]
  - Pruritus [Not Recovered/Not Resolved]
  - Oral pain [Not Recovered/Not Resolved]
  - Haemoptysis [Not Recovered/Not Resolved]
  - Dry skin [Unknown]
